FAERS Safety Report 7549347-0 (Version None)
Quarter: 2011Q2

REPORT INFORMATION
  Report Type: 
  Country: None (occurrence: None)
  Receive Date: 20110615
  Receipt Date: 20031029
  Transmission Date: 20111010
  Serious: Yes (Other)
  Sender: FDA-Public Use
  Company Number: PHHO2002CA10979

PATIENT
  Sex: Female

DRUGS (2)
  1. DIOVAN [Suspect]
     Dosage: 80 MG, QD
     Route: 048
  2. VIOXX [Concomitant]
     Dosage: 25 OT, QD

REACTIONS (1)
  - CEREBROVASCULAR ACCIDENT [None]
